FAERS Safety Report 5726708-3 (Version None)
Quarter: 2008Q2

REPORT INFORMATION
  Report Type: 
  Country: None (occurrence: None)
  Receive Date: 20080502
  Receipt Date: 20080422
  Transmission Date: 20081010
  Serious: Yes (Death, Hospitalization, Other)
  Sender: FDA-Public Use
  Company Number: BR-PFIZER INC-2007072083

PATIENT
  Sex: Male

DRUGS (1)
  1. SUTENT [Suspect]
     Indication: METASTATIC NEOPLASM
     Route: 048
     Dates: start: 20070101, end: 20070101

REACTIONS (4)
  - AGEUSIA [None]
  - DISEASE PROGRESSION [None]
  - METASTATIC NEOPLASM [None]
  - PAIN [None]
